FAERS Safety Report 6700852-6 (Version None)
Quarter: 2010Q2

REPORT INFORMATION
  Report Type: 
  Country: None (occurrence: None)
  Receive Date: 20100426
  Receipt Date: 20100414
  Transmission Date: 20101027
  Serious: Yes (Life-Threatening, Hospitalization, Other)
  Sender: FDA-Public Use
  Company Number: INDI-TH-2010-0012

PATIENT
  Age: 65 Year
  Sex: Female

DRUGS (20)
  1. INDOCIN [Suspect]
     Indication: RHEUMATOID ARTHRITIS
     Dosage: 25 MG/BID PER ORAL
     Route: 048
     Dates: start: 20081110, end: 20100120
  2. BLINDED THERAPY [Suspect]
     Indication: RHEUMATOID ARTHRITIS
     Dosage: PER ORAL; SUBUCTANEOUS
     Route: 048
     Dates: start: 20091110, end: 20100115
  3. BLINDED THERAPY [Suspect]
     Indication: RHEUMATOID ARTHRITIS
     Dosage: PER ORAL; SUBUCTANEOUS
     Route: 048
     Dates: end: 20100115
  4. SOLN METHOTREXATE (METHOTREXATE) (METHOTREXATE) [Suspect]
     Dosage: 7.5 MG/WKY PER ORAL
     Route: 048
     Dates: start: 20081115, end: 20100114
  5. BISOLVON (BROMHEXINE HYDROCHLORIDE) [Concomitant]
  6. CELLUFRESH (SODIUM LACTATE, CARMELLOSE SODIUM, ELECTROLYTES NOS) SODIU [Concomitant]
  7. EBC (FOLIC ACID, NICOTINIC ACID, THIAMINE HYDROCHLORIDE, CYANOCOBALAMI [Concomitant]
  8. KENALOG IN ORABASE [Concomitant]
  9. ROMILAR (DEXTROMETHORPHAN HYDROBROMIDE) [Concomitant]
  10. ZOCOR [Concomitant]
  11. ACETAMINOPHEN (PARACETAMOL) (PARACETAMOL) [Concomitant]
  12. ACYCLOVIR (ACICLOVIR) (ACICLOVIR) [Concomitant]
  13. CALCIUM CARBONATE (CALCIUM CARBONATE) (CALCIUM CARBONATE) [Concomitant]
  14. CHLOROTHIAZIDE (CHLOROTHIAZIDE) (CHLOROTHIAZIDE) [Concomitant]
  15. CYANOCOBALAMIN (+) PYRIDOXINE HYDROCHLOR [Concomitant]
  16. FOLIC ACID (FOLIC ACID) (FOLIC ACID) [Concomitant]
  17. ISONIAZID [Concomitant]
  18. OMEPRAZOLE [Concomitant]
  19. VITAMINS (UNSPECIFIED) [Concomitant]
  20. ORPHENADRINE CITRATE [Concomitant]

REACTIONS (21)
  - ACUTE MYOCARDIAL INFARCTION [None]
  - ARTHRITIS BACTERIAL [None]
  - BACK PAIN [None]
  - CARDIAC FAILURE [None]
  - CARDIOMEGALY [None]
  - DIARRHOEA [None]
  - ELECTROCARDIOGRAM T WAVE INVERSION [None]
  - FATIGUE [None]
  - HEADACHE [None]
  - HYPERTENSION [None]
  - LEUKOCYTOSIS [None]
  - LEUKOCYTURIA [None]
  - LUNG INFILTRATION [None]
  - MUCOSAL INFLAMMATION [None]
  - MYALGIA [None]
  - MYOCARDIAL INFARCTION [None]
  - OEDEMA [None]
  - PULMONARY CONGESTION [None]
  - SYNOVITIS [None]
  - TACHYCARDIA [None]
  - TROPONIN T INCREASED [None]
